FAERS Safety Report 10238461 (Version 1)
Quarter: 2014Q2

REPORT INFORMATION
  Report Type: Spontaneous
  Country: US (occurrence: None)
  Receive Date: 20140613
  Receipt Date: 20140613
  Transmission Date: 20141212
  Serious: No
  Sender: FDA-Public Use
  Company Number: None

PATIENT
  Age: 46 Year
  Sex: Male

DRUGS (1)
  1. HUMIRA PEN 40MG ABBOTT [Suspect]
     Indication: COLITIS ULCERATIVE
     Route: 058
     Dates: start: 20140424

REACTIONS (2)
  - Depression [None]
  - Lethargy [None]
